FAERS Safety Report 16268866 (Version 1)
Quarter: 2019Q2

REPORT INFORMATION
  Report Type: Spontaneous
  Country: US (occurrence: US)
  Receive Date: 20190503
  Receipt Date: 20190503
  Transmission Date: 20190711
  Serious: Yes (Disabling)
  Sender: FDA-Public Use
  Company Number: US-ZYDUS-020871

PATIENT
  Age: 55 Year
  Sex: Female

DRUGS (3)
  1. ADALIMUMAB [Concomitant]
     Active Substance: ADALIMUMAB
     Indication: RHEUMATOID ARTHRITIS
     Route: 065
  2. PAROXETINE. [Suspect]
     Active Substance: PAROXETINE
     Indication: PANIC ATTACK
     Route: 048
     Dates: start: 2010
  3. LEVOTHYROXINE. [Concomitant]
     Active Substance: LEVOTHYROXINE
     Indication: HYPOTHYROIDISM
     Route: 065
     Dates: start: 2010

REACTIONS (8)
  - Adverse drug reaction [Recovered/Resolved]
  - Drug ineffective [Recovered/Resolved]
  - Cortisol increased [Recovered/Resolved]
  - Headache [Not Recovered/Not Resolved]
  - Norepinephrine increased [Recovered/Resolved]
  - Feeling abnormal [Not Recovered/Not Resolved]
  - Anxiety [Recovered/Resolved]
  - Somnolence [Recovered/Resolved]

NARRATIVE: CASE EVENT DATE: 201806
